FAERS Safety Report 7204475-4 (Version None)
Quarter: 2010Q4

REPORT INFORMATION
  Report Type: 
  Country: None (occurrence: None)
  Receive Date: 20101220
  Receipt Date: 20100612
  Transmission Date: 20110411
  Serious: Yes (Hospitalization)
  Sender: FDA-Public Use
  Company Number: OU-10-041-2

PATIENT
  Age: 32 Year
  Sex: Male

DRUGS (1)
  1. CEFAZOLIN FOR INJECTION  (NO PREF. NAME) [Suspect]
     Dosage: UNKNOWN

REACTIONS (1)
  - DRUG ERUPTION [None]
